FAERS Safety Report 24730613 (Version 1)
Quarter: 2024Q4

REPORT INFORMATION
  Report Type: Spontaneous
  Country: US (occurrence: None)
  Receive Date: 20241213
  Receipt Date: 20241213
  Transmission Date: 20250114
  Serious: Yes (Other)
  Sender: ENCUBE ETHICALS
  Company Number: US-Encube-001436

PATIENT
  Age: 31 Year
  Sex: Female

DRUGS (1)
  1. TESTOSTERONE [Suspect]
     Active Substance: TESTOSTERONE
     Indication: Transgender hormonal therapy
     Dosage: INJECTION ONCE
     Route: 030
     Dates: start: 2021, end: 2023

REACTIONS (2)
  - Ovarian granulosa cell tumour [Recovering/Resolving]
  - Off label use [Unknown]

NARRATIVE: CASE EVENT DATE: 20210101
